FAERS Safety Report 9373858 (Version 3)
Quarter: 2014Q1

REPORT INFORMATION
  Report Type: Report from Study
  Country: GB (occurrence: GB)
  Receive Date: 20130628
  Receipt Date: 20140326
  Transmission Date: 20141002
  Serious: Yes (Hospitalization, Other)
  Sender: FDA-Public Use
  Company Number: GB-ROCHE-1238973

PATIENT
  Age: 81 Year
  Sex: Female

DRUGS (7)
  1. RANIBIZUMAB [Suspect]
     Indication: PRODUCT USED FOR UNKNOWN INDICATION
     Route: 065
     Dates: start: 20090320, end: 20130516
  2. RANIBIZUMAB [Suspect]
     Route: 050
     Dates: start: 20130613
  3. AMILORIDE [Concomitant]
  4. BUMETANIDE [Concomitant]
  5. CARBIMAZOLE [Concomitant]
  6. LANSOPRAZOLE [Concomitant]
     Route: 065
     Dates: start: 20130517
  7. PRAVASTATIN [Concomitant]

REACTIONS (4)
  - Carotid artery disease [Recovered/Resolved]
  - Transient ischaemic attack [Recovered/Resolved]
  - Bundle branch block right [Recovering/Resolving]
  - Sensation of heaviness [Recovered/Resolved]
